FAERS Safety Report 7768181-X (Version None)
Quarter: 2011Q3

REPORT INFORMATION
  Report Type: 
  Country: None (occurrence: None)
  Receive Date: 20110922
  Receipt Date: 20110922
  Transmission Date: 20111222
  Serious: Yes (Disabling, Other)
  Sender: FDA-Public Use
  Company Number: None

PATIENT
  Sex: Female
  Weight: 49.441 kg

DRUGS (1)
  1. ULTRAVIST 150 [Suspect]
     Indication: PULMONARY MASS
     Dosage: 55ML
     Route: 040
     Dates: start: 20110909, end: 20110909

REACTIONS (6)
  - EYE SWELLING [None]
  - PRODUCT QUALITY ISSUE [None]
  - SWELLING FACE [None]
  - RESPIRATORY DISORDER [None]
  - CONTRAST MEDIA REACTION [None]
  - CARDIAC DISORDER [None]
